FAERS Safety Report 6703858-6 (Version None)
Quarter: 2010Q2

REPORT INFORMATION
  Report Type: 
  Country: None (occurrence: None)
  Receive Date: 20100430
  Receipt Date: 20100420
  Transmission Date: 20101027
  Serious: Yes (Other)
  Sender: FDA-Public Use
  Company Number: FR-PFIZER INC-2010051003

PATIENT
  Age: 47 Year
  Sex: Male

DRUGS (1)
  1. ATARAX [Suspect]
     Indication: URTICARIA
     Dosage: 25 MG DAILY
     Route: 048
     Dates: start: 20100201, end: 20100415

REACTIONS (2)
  - HEADACHE [None]
  - VISION BLURRED [None]
